FAERS Safety Report 8430222-4 (Version None)
Quarter: 2012Q2

REPORT INFORMATION
  Report Type: 
  Country: None (occurrence: None)
  Receive Date: 20120612
  Receipt Date: 20120605
  Transmission Date: 20120825
  Serious: Yes (Life-Threatening)
  Sender: FDA-Public Use
  Company Number: BR-BRISTOL-MYERS SQUIBB COMPANY-16583635

PATIENT
  Age: 45 Year
  Sex: Female
  Weight: 72 kg

DRUGS (2)
  1. COMBIVIR [Suspect]
     Indication: HIV INFECTION
     Dosage: INTER ON 7MAY12 LAST DOSE 3MAY12
     Route: 048
     Dates: start: 20080520
  2. ATAZANAVIR [Suspect]
     Indication: HIV INFECTION
     Dosage: LAST DOSE 3MAY12 INTER ON 7MAY12
     Route: 048
     Dates: start: 20110804

REACTIONS (1)
  - HEPATOTOXICITY [None]
